FAERS Safety Report 5688371-X (Version None)
Quarter: 2008Q1

REPORT INFORMATION
  Report Type: 
  Country: None (occurrence: None)
  Receive Date: 20080328
  Receipt Date: 20080328
  Transmission Date: 20080703
  Serious: No
  Sender: FDA-Public Use
  Company Number: None

PATIENT
  Age: 60 Year
  Sex: Female
  Weight: 65.318 kg

DRUGS (1)
  1. LEVAQUIN [Suspect]
     Indication: SINUSITIS
     Dosage: 500 MG 1 TIME A DAY PO
     Route: 048
     Dates: start: 20080222, end: 20080302

REACTIONS (18)
  - ANXIETY [None]
  - ASTHENIA [None]
  - CHEST PAIN [None]
  - CONFUSIONAL STATE [None]
  - CONSTIPATION [None]
  - DEHYDRATION [None]
  - DEPRESSION [None]
  - DIARRHOEA [None]
  - EYE PAIN [None]
  - INSOMNIA [None]
  - IRRITABILITY [None]
  - JOINT STIFFNESS [None]
  - MOUTH ULCERATION [None]
  - NECK PAIN [None]
  - NIGHTMARE [None]
  - SWELLING [None]
  - URINARY RETENTION [None]
  - VISION BLURRED [None]
